FAERS Safety Report 7632061-0 (Version None)
Quarter: 2011Q3

REPORT INFORMATION
  Report Type: 
  Country: None (occurrence: None)
  Receive Date: 20110725
  Receipt Date: 20110504
  Transmission Date: 20111222
  Serious: No
  Sender: FDA-Public Use
  Company Number: US-BAYER-2011-039085

PATIENT
  Age: 38 Year
  Sex: Female

DRUGS (2)
  1. MIRENA [Suspect]
     Indication: CONTRACEPTION
     Dosage: 20 ?G, CONT
     Route: 015
     Dates: start: 20110318, end: 20110425
  2. MIRENA [Suspect]
     Indication: MENORRHAGIA

REACTIONS (4)
  - ABDOMINAL PAIN [None]
  - NAUSEA [None]
  - BACK PAIN [None]
  - PROCEDURAL PAIN [None]
